FAERS Safety Report 5212815-0 (Version None)
Quarter: 2007Q1

REPORT INFORMATION
  Report Type: 
  Country: None (occurrence: None)
  Receive Date: 20070119
  Receipt Date: 20070111
  Transmission Date: 20070707
  Serious: Yes (Other)
  Sender: FDA-Public Use
  Company Number: 2007UW00733

PATIENT
  Age: 59 Year
  Sex: Male
  Weight: 80 kg

DRUGS (4)
  1. NEXIUM [Suspect]
     Indication: GASTROOESOPHAGEAL REFLUX DISEASE
     Route: 048
     Dates: start: 20050201, end: 20060901
  2. PARACETAMOL CLORZOXAZONA [Concomitant]
     Indication: PAIN
     Route: 048
  3. NEUROFLAX [Concomitant]
     Route: 048
  4. ALMAX [Concomitant]
     Indication: GASTRITIS
     Route: 048

REACTIONS (1)
  - MUCOSAL INFLAMMATION [None]
